FAERS Safety Report 7906958-8 (Version None)
Quarter: 2011Q4

REPORT INFORMATION
  Report Type: 
  Country: None (occurrence: None)
  Receive Date: 20111110
  Receipt Date: 20111104
  Transmission Date: 20120403
  Serious: Yes (Other)
  Sender: FDA-Public Use
  Company Number: FR-GILEAD-2011-0046313

PATIENT
  Age: 50 Year
  Sex: Female

DRUGS (2)
  1. ATRIPLA [Suspect]
     Indication: HIV INFECTION
     Dosage: UNK
     Dates: start: 20090501
  2. PHYTONORM DESMOPAR [Concomitant]

REACTIONS (2)
  - BILIARY CIRRHOSIS PRIMARY [None]
  - CYTOLYTIC HEPATITIS [None]
